FAERS Safety Report 6983771-X (Version None)
Quarter: 2010Q3

REPORT INFORMATION
  Report Type: 
  Country: None (occurrence: None)
  Receive Date: 20100914
  Receipt Date: 20090316
  Transmission Date: 20110219
  Serious: No
  Sender: FDA-Public Use
  Company Number: US-WYE-H08156209

PATIENT
  Age: 67 Year
  Sex: Female
  Weight: 91.25 kg

DRUGS (4)
  1. ADVIL LIQUI-GELS [Suspect]
     Indication: BACK PAIN
     Route: 048
     Dates: start: 20090205
  2. ADVIL LIQUI-GELS [Suspect]
     Indication: ARTHRALGIA
  3. ACCUPRIL [Concomitant]
  4. TOPROL-XL [Concomitant]

REACTIONS (2)
  - DRUG INEFFECTIVE [None]
  - INCORRECT DOSE ADMINISTERED [None]
